FAERS Safety Report 10060599 (Version 1)
Quarter: 2014Q2

REPORT INFORMATION
  Report Type: Spontaneous
  Country: US (occurrence: US)
  Receive Date: 20140404
  Receipt Date: 20140404
  Transmission Date: 20141212
  Serious: Yes (Hospitalization)
  Sender: FDA-Public Use
  Company Number: US-ELI_LILLY_AND_COMPANY-US201403010216

PATIENT
  Age: 42 Year
  Sex: Female

DRUGS (3)
  1. ADCIRCA [Suspect]
     Indication: PULMONARY HYPERTENSION
     Dosage: 40 MG, QD
     Route: 048
  2. LETAIRIS [Suspect]
     Indication: PULMONARY HYPERTENSION
     Dosage: 5 MG, QD
     Dates: start: 20121026
  3. TYVASO [Suspect]
     Indication: PULMONARY HYPERTENSION
     Dosage: 0.6 UG, QID

REACTIONS (1)
  - Dyspnoea [Recovered/Resolved]
